FAERS Safety Report 17146641 (Version 2)
Quarter: 2020Q4

REPORT INFORMATION
  Report Type: Spontaneous
  Country: US (occurrence: US)
  Receive Date: 20191212
  Receipt Date: 20201130
  Transmission Date: 20210113
  Serious: No
  Sender: FDA-Public Use
  Company Number: US-JNJFOC-20191218929

PATIENT
  Age: 71 Year
  Sex: Male

DRUGS (1)
  1. RISPERDAL [Suspect]
     Active Substance: RISPERIDONE
     Indication: PRODUCT USED FOR UNKNOWN INDICATION
     Dosage: 0.5 AM/ 0.25 PM?EVERY AM, EVERY 5:30 PM
     Route: 065

REACTIONS (4)
  - Dizziness [Recovered/Resolved]
  - Incorrect product dosage form administered [Unknown]
  - Mental disorder [Unknown]
  - Gait disturbance [Recovered/Resolved]
